FAERS Safety Report 9201160 (Version 2)
Quarter: 2013Q3

REPORT INFORMATION
  Report Type: Report from Study
  Country: FR (occurrence: FR)
  Receive Date: 20130401
  Receipt Date: 20130906
  Transmission Date: 20140515
  Serious: Yes (Other)
  Sender: FDA-Public Use
  Company Number: PHHY2013FR030563

PATIENT
  Age: 40 Year
  Sex: Female

DRUGS (2)
  1. EXTAVIA [Suspect]
     Indication: MULTIPLE SCLEROSIS
     Dosage: UNK UKN, QD
     Route: 058
     Dates: start: 20120702, end: 20130630
  2. BROMAZEPAM [Concomitant]
     Indication: STRESS
     Dosage: UNK UKN, UNK
     Dates: start: 20130321

REACTIONS (9)
  - Liver disorder [Not Recovered/Not Resolved]
  - Multiple sclerosis relapse [Recovered/Resolved]
  - Paraesthesia [Unknown]
  - Hypertension [Recovered/Resolved]
  - Blood bilirubin increased [Not Recovered/Not Resolved]
  - Transaminases increased [Recovered/Resolved]
  - Gamma-glutamyltransferase increased [Not Recovered/Not Resolved]
  - Aspartate aminotransferase increased [Not Recovered/Not Resolved]
  - Alanine aminotransferase increased [Recovered/Resolved]
